FAERS Safety Report 21984726 (Version 1)
Quarter: 2023Q1

REPORT INFORMATION
  Report Type: Other
  Country: CA (occurrence: CA)
  Receive Date: 20230213
  Receipt Date: 20230213
  Transmission Date: 20230417
  Serious: Yes (Other)
  Sender: FDA-Public Use
  Company Number: CA-PFIZER INC-202300059124

PATIENT
  Sex: Female

DRUGS (9)
  1. AZITHROMYCIN [Suspect]
     Active Substance: AZITHROMYCIN
     Indication: Ureaplasma infection
     Dosage: 1 G, 1X/DAY
     Route: 048
  2. AZITHROMYCIN [Suspect]
     Active Substance: AZITHROMYCIN
     Indication: Amniotic cavity infection
  3. DEXTROSE [Suspect]
     Active Substance: DEXTROSE
     Route: 065
  4. AMPICILLIN [Suspect]
     Active Substance: AMPICILLIN
     Indication: Ureaplasma infection
     Dosage: 1 G, 4X/DAY
     Route: 042
  5. AMPICILLIN [Suspect]
     Active Substance: AMPICILLIN
     Indication: Amniotic cavity infection
  6. ATOSIBAN [Suspect]
     Active Substance: ATOSIBAN
     Route: 065
  7. BETAMETHASONE [Suspect]
     Active Substance: BETAMETHASONE
     Dosage: 12 MG, 1X/DAY
     Route: 030
  8. GENTAMICIN [Suspect]
     Active Substance: GENTAMICIN
     Indication: Ureaplasma infection
     Dosage: 80 MG, 3X/DAY
     Route: 042
  9. GENTAMICIN [Suspect]
     Active Substance: GENTAMICIN
     Indication: Amniotic cavity infection

REACTIONS (2)
  - Maternal exposure during pregnancy [Unknown]
  - Premature delivery [Unknown]
